FAERS Safety Report 9972582 (Version 1)
Quarter: 2014Q1

REPORT INFORMATION
  Report Type: Report from Study
  Country: US (occurrence: US)
  Receive Date: 20140306
  Receipt Date: 20140306
  Transmission Date: 20141002
  Serious: No
  Sender: FDA-Public Use
  Company Number: US-ABBVIE-13P-163-1154385-00

PATIENT
  Age: 46 Year
  Sex: Male
  Weight: 86.26 kg

DRUGS (5)
  1. HUMIRA [Suspect]
     Indication: CROHN^S DISEASE
     Dosage: STARTING DOSE
     Route: 058
     Dates: start: 201309, end: 201309
  2. HUMIRA [Suspect]
     Dosage: SECOND DOSE
     Route: 058
     Dates: start: 201309, end: 201309
  3. HUMIRA [Suspect]
     Route: 058
     Dates: start: 201310
  4. LIALDA [Concomitant]
     Indication: CROHN^S DISEASE
  5. LANSOPRAZOLE [Concomitant]
     Indication: GASTROOESOPHAGEAL REFLUX DISEASE

REACTIONS (2)
  - Drug dose omission [Not Recovered/Not Resolved]
  - Rectal haemorrhage [Not Recovered/Not Resolved]
